FAERS Safety Report 11730881 (Version 1)
Quarter: 2015Q4

REPORT INFORMATION
  Report Type: Spontaneous
  Country: US (occurrence: US)
  Receive Date: 20151110
  Receipt Date: 20151110
  Transmission Date: 20160304
  Serious: No
  Sender: FDA-Public Use
  Company Number: US-ELI_LILLY_AND_COMPANY-US201111007854

PATIENT
  Age: 74 Year
  Sex: Female

DRUGS (3)
  1. FORTEO [Suspect]
     Active Substance: TERIPARATIDE
     Dosage: 20 UG, QD
  2. CALCIUM [Concomitant]
     Active Substance: CALCIUM
     Dosage: 1500 MG, UNK
  3. FORTEO [Suspect]
     Active Substance: TERIPARATIDE
     Indication: OSTEOPOROSIS
     Dosage: 20 UG, QD
     Dates: start: 20111112

REACTIONS (18)
  - Fear [Recovered/Resolved]
  - Pyrexia [Unknown]
  - Back pain [Unknown]
  - Fatigue [Not Recovered/Not Resolved]
  - Dyspnoea [Recovered/Resolved]
  - Heart rate increased [Recovered/Resolved]
  - Chest discomfort [Recovered/Resolved]
  - Asthenia [Recovering/Resolving]
  - Blood calcium increased [Not Recovered/Not Resolved]
  - Balance disorder [Unknown]
  - Urinary tract infection [Unknown]
  - Parkinson^s disease [Unknown]
  - Injection site erythema [Not Recovered/Not Resolved]
  - Apathy [Unknown]
  - Vomiting [Unknown]
  - Muscular weakness [Unknown]
  - Hypersomnia [Unknown]
  - Injection site bruising [Unknown]

NARRATIVE: CASE EVENT DATE: 20111112
